FAERS Safety Report 5394021-2 (Version None)
Quarter: 2007Q3

REPORT INFORMATION
  Report Type: 
  Country: None (occurrence: None)
  Receive Date: 20070723
  Receipt Date: 20070117
  Transmission Date: 20080115
  Serious: No
  Sender: FDA-Public Use
  Company Number: A0636183A

PATIENT
  Age: 67 Year
  Sex: Female
  Weight: 103.6 kg

DRUGS (2)
  1. AVANDIA [Suspect]
     Route: 048
  2. METFORMIN HCL [Concomitant]
     Dates: start: 20060301

REACTIONS (1)
  - PAIN [None]
